FAERS Safety Report 4331115-4 (Version None)
Quarter: 2004Q1

REPORT INFORMATION
  Report Type: 
  Country: None (occurrence: None)
  Receive Date: 20040331
  Receipt Date: 20040326
  Transmission Date: 20041129
  Serious: Yes (Death)
  Sender: FDA-Public Use
  Company Number: US-SHR-03-014632

PATIENT
  Age: 82 Year
  Sex: Male
  Weight: 90.7 kg

DRUGS (1)
  1. MAGNEVIST [Suspect]
     Indication: NUCLEAR MAGNETIC RESONANCE IMAGING
     Dosage: 20 ML, 1 DOSE AT 2 ML/SECOND, INTRAVENOUS
     Route: 042
     Dates: start: 20030910, end: 20030910

REACTIONS (2)
  - CARDIO-RESPIRATORY ARREST [None]
  - COMA [None]
